FAERS Safety Report 6649875-6 (Version None)
Quarter: 2010Q1

REPORT INFORMATION
  Report Type: 
  Country: None (occurrence: None)
  Receive Date: 20100325
  Receipt Date: 20100316
  Transmission Date: 20100710
  Serious: Yes (Hospitalization)
  Sender: FDA-Public Use
  Company Number: US-BIOGENIDEC-2010BI005715

PATIENT
  Age: 43 Year
  Sex: Female
  Weight: 96 kg

DRUGS (4)
  1. AVONEX [Suspect]
     Indication: MULTIPLE SCLEROSIS
     Route: 030
     Dates: start: 20090109, end: 20091219
  2. CYCLESSA [Concomitant]
     Route: 048
     Dates: start: 20091217
  3. HORMONES (NOS) [Concomitant]
  4. IBUPROFEN [Concomitant]

REACTIONS (5)
  - DIZZINESS [None]
  - INFLUENZA LIKE ILLNESS [None]
  - NASOPHARYNGITIS [None]
  - NUCLEAR MAGNETIC RESONANCE IMAGING ABNORMAL [None]
  - VESTIBULAR DISORDER [None]
